FAERS Safety Report 5032901-8 (Version None)
Quarter: 2006Q2

REPORT INFORMATION
  Report Type: 
  Country: None (occurrence: None)
  Receive Date: 20060622
  Receipt Date: 20060602
  Transmission Date: 20061013
  Serious: Yes (Hospitalization)
  Sender: FDA-Public Use
  Company Number: JP-AVENTIS-200611712JP

PATIENT
  Age: 82 Year
  Sex: Male
  Weight: 65 kg

DRUGS (6)
  1. ALLEGRA [Suspect]
     Indication: RASH
     Route: 048
     Dates: start: 20060525, end: 20060602
  2. MINOCYCLINE HCL [Suspect]
     Indication: PYREXIA
     Route: 041
     Dates: start: 20060522, end: 20060524
  3. ASPIRIN [Concomitant]
     Indication: MYOCARDIAL INFARCTION
     Route: 048
     Dates: end: 20060602
  4. SIGMART [Concomitant]
     Indication: MYOCARDIAL INFARCTION
     Dates: start: 20050809
  5. ATELEC [Concomitant]
     Indication: HYPERTENSION
     Route: 048
  6. KREMEZIN [Concomitant]
     Indication: RENAL FAILURE
     Route: 048

REACTIONS (2)
  - PLATELET COUNT DECREASED [None]
  - RASH GENERALISED [None]
